FAERS Safety Report 13119258 (Version 1)
Quarter: 2017Q1

REPORT INFORMATION
  Report Type: Other
  Country: US (occurrence: US)
  Receive Date: 20170116
  Receipt Date: 20170116
  Transmission Date: 20170428
  Serious: Yes (Death)
  Sender: FDA-Public Use
  Company Number: US-LEHIGH_VALLEY-USA-POI0580201700009

PATIENT
  Age: 20 Year
  Sex: Female

DRUGS (8)
  1. OXYMORPHONE [Suspect]
     Active Substance: OXYMORPHONE
     Dates: end: 2015
  2. ACETAMINOPHEN. [Suspect]
     Active Substance: ACETAMINOPHEN
     Dates: end: 2015
  3. TRAMADOL. [Suspect]
     Active Substance: TRAMADOL
     Dates: end: 2015
  4. OXYCODONE HCL CAPSULES [Suspect]
     Active Substance: OXYCODONE HYDROCHLORIDE
     Dates: end: 2015
  5. HYDROCODONE [Suspect]
     Active Substance: HYDROCODONE
     Dates: end: 2015
  6. ALCOHOL. [Suspect]
     Active Substance: ALCOHOL
     Dates: end: 2015
  7. IBUPROFEN. [Suspect]
     Active Substance: IBUPROFEN
     Dates: end: 2015
  8. NAPROXEN. [Suspect]
     Active Substance: NAPROXEN
     Dates: end: 2015

REACTIONS (1)
  - Completed suicide [Fatal]

NARRATIVE: CASE EVENT DATE: 2015
